FAERS Safety Report 9653314 (Version 4)
Quarter: 2013Q4

REPORT INFORMATION
  Report Type: Spontaneous
  Country: JP (occurrence: JP)
  Receive Date: 20131029
  Receipt Date: 20131212
  Transmission Date: 20140711
  Serious: Yes (Other)
  Sender: FDA-Public Use
  Company Number: JP-PFIZER INC-2013309422

PATIENT
  Age: 57 Year
  Sex: Male

DRUGS (2)
  1. CELECOX [Suspect]
     Indication: RHEUMATOID ARTHRITIS
     Dosage: 200 MG, DAILY
     Route: 048
     Dates: start: 20130822
  2. LYRICA [Concomitant]
     Dosage: UNK
     Dates: end: 20131111

REACTIONS (1)
  - Cardiac pacemaker insertion [Unknown]
